FAERS Safety Report 7224443-6 (Version None)
Quarter: 2011Q1

REPORT INFORMATION
  Report Type: 
  Country: None (occurrence: None)
  Receive Date: 20110113
  Receipt Date: 20110107
  Transmission Date: 20110831
  Serious: Yes (Disabling)
  Sender: FDA-Public Use
  Company Number: CA-JNJFOC-20110101705

PATIENT
  Age: 36 Year
  Sex: Female

DRUGS (3)
  1. METHYLPHENIDATE [Suspect]
     Indication: ILL-DEFINED DISORDER
     Route: 065
  2. CONCERTA [Suspect]
     Indication: ILL-DEFINED DISORDER
     Route: 048
  3. CONCERTA [Suspect]
     Route: 048

REACTIONS (12)
  - MUSCLE ATROPHY [None]
  - IMPULSIVE BEHAVIOUR [None]
  - FATIGUE [None]
  - DIZZINESS [None]
  - HYPOAESTHESIA [None]
  - NAUSEA [None]
  - MOOD ALTERED [None]
  - ARTHROPATHY [None]
  - MYOPIA [None]
  - ANXIETY [None]
  - HEADACHE [None]
  - OCULOGYRIC CRISIS [None]
